FAERS Safety Report 7138400-1 (Version None)
Quarter: 2010Q4

REPORT INFORMATION
  Report Type: 
  Country: None (occurrence: None)
  Receive Date: 20101109
  Receipt Date: 20101027
  Transmission Date: 20110411
  Serious: Yes (Disabling)
  Sender: FDA-Public Use
  Company Number: 2010026797

PATIENT
  Sex: Male
  Weight: 54 kg

DRUGS (1)
  1. CARIMUNE [Suspect]
     Indication: ACUTE DISSEMINATED ENCEPHALOMYELITIS
     Dosage: (50 G QD INTRAVENOUS)
     Route: 042
     Dates: start: 20100406, end: 20100408

REACTIONS (1)
  - MENINGITIS ASEPTIC [None]
